FAERS Safety Report 17606736 (Version 3)
Quarter: 2020Q3

REPORT INFORMATION
  Report Type: Report from Study
  Country: PL (occurrence: PL)
  Receive Date: 20200331
  Receipt Date: 20200506
  Transmission Date: 20201104
  Serious: Yes (Hospitalization, Other)
  Sender: FDA-Public Use
  Company Number: PL-CELGENEUS-POL-20200105773

PATIENT
  Age: 46 Year
  Sex: Female
  Weight: 52.6 kg

DRUGS (28)
  1. PIRAMIL [Concomitant]
     Active Substance: RAMIPRIL
     Dosage: 5 MILLIGRAM
     Route: 048
     Dates: start: 20190610
  2. POLPRAZOL [Concomitant]
     Active Substance: OMEPRAZOLE
     Indication: PRODUCT USED FOR UNKNOWN INDICATION
     Route: 065
  3. DIUVER [Concomitant]
     Active Substance: TORSEMIDE
     Indication: HYPERTENSION
  4. PANPRAZOX ? PANTOPRAZOLUM [Concomitant]
     Indication: PROPHYLAXIS
     Dosage: 20 MILLIGRAM
     Route: 048
     Dates: start: 20180919
  5. PIRAMIL [Concomitant]
     Active Substance: RAMIPRIL
     Route: 048
     Dates: start: 20190107
  6. VITAMINUM C COMLEX [Concomitant]
     Indication: UPPER RESPIRATORY TRACT INFECTION
     Dosage: 1 TABLET
     Route: 048
     Dates: start: 20180409
  7. ATRAM [Concomitant]
     Active Substance: CARVEDILOL
     Indication: HYPERTENSION
     Dosage: 12.5 MILLIGRAM
     Route: 048
     Dates: start: 20191107
  8. CLOPIDOGREL [Concomitant]
     Active Substance: CLOPIDOGREL BISULFATE
     Indication: PRODUCT USED FOR UNKNOWN INDICATION
     Route: 065
  9. BETOZK [Concomitant]
     Indication: CARDIOMYOPATHY
     Dosage: 50 MILLIGRAM
     Route: 048
     Dates: start: 20180925
  10. BIOTRAXON?CEFTRIAKSON [Concomitant]
     Indication: CHRONIC OBSTRUCTIVE PULMONARY DISEASE
     Route: 050
  11. PLAVIX [Concomitant]
     Active Substance: CLOPIDOGREL BISULFATE
     Indication: MYOCARDIAL INFARCTION
     Dosage: 75 MILLIGRAM
     Route: 048
     Dates: start: 20180919
  12. ACARD [Concomitant]
     Active Substance: ASPIRIN
     Indication: MYOCARDIAL INFARCTION
     Dosage: 75 MILLIGRAM
     Route: 048
     Dates: start: 20180919
  13. BETO ZK 50 [Concomitant]
     Indication: CARDIAC FAILURE CHRONIC
  14. VENTOLIN [Concomitant]
     Active Substance: ALBUTEROL SULFATE
     Indication: CHRONIC OBSTRUCTIVE PULMONARY DISEASE
     Route: 055
     Dates: start: 20180418
  15. NEUROPHEN [Concomitant]
     Indication: HEADACHE
     Route: 048
  16. PIRAMIL [Concomitant]
     Active Substance: RAMIPRIL
     Indication: HYPERTENSION
     Dosage: 2.5 MILLIGRAM
     Route: 048
     Dates: start: 20190610
  17. SORTIS [Concomitant]
     Active Substance: ATORVASTATIN
     Indication: PROPHYLAXIS
     Dosage: 20 MILLIGRAM
     Route: 048
     Dates: start: 20180919
  18. THEOSPIREX RETARD [Concomitant]
     Indication: CHRONIC OBSTRUCTIVE PULMONARY DISEASE
     Dosage: 300 MILLIGRAM
     Route: 048
     Dates: start: 20191107
  19. OZANIMOD. [Suspect]
     Active Substance: OZANIMOD
     Indication: RELAPSING MULTIPLE SCLEROSIS
     Dosage: 1 MILLIGRAM
     Route: 048
     Dates: start: 20160420
  20. FLUCONAZOLUM [Concomitant]
     Indication: ORAL FUNGAL INFECTION
     Dosage: 200 MILLIGRAM
     Route: 048
     Dates: start: 20180719
  21. MULTILAC [Concomitant]
     Indication: UPPER RESPIRATORY TRACT INFECTION
     Dosage: 1 CAPSULE
     Route: 048
     Dates: start: 20180409
  22. PARACETAMOL [Concomitant]
     Active Substance: ACETAMINOPHEN
     Indication: HEADACHE
     Route: 048
  23. PULMICORT TURBUHALER [Concomitant]
     Active Substance: BUDESONIDE
     Indication: CHRONIC OBSTRUCTIVE PULMONARY DISEASE
     Route: 055
     Dates: start: 20180919
  24. DIUVER [Concomitant]
     Active Substance: TORSEMIDE
     Indication: PERIPHERAL SWELLING
     Dosage: 5 MILLIGRAM
     Route: 048
     Dates: start: 20190610
  25. ATROVENT [Concomitant]
     Active Substance: IPRATROPIUM BROMIDE
     Indication: CHRONIC OBSTRUCTIVE PULMONARY DISEASE
     Route: 055
     Dates: start: 20191107
  26. BETO ZK 50 [Concomitant]
     Indication: HYPERTENSION
     Dosage: 50 MILLIGRAM
     Route: 048
     Dates: start: 20180925
  27. DITROPAN [Concomitant]
     Active Substance: OXYBUTYNIN CHLORIDE
     Indication: URINARY INCONTINENCE
     Dosage: 5 MILLIGRAM
     Route: 048
     Dates: start: 20190717
  28. ROZEX CREAM [Concomitant]
     Indication: SKIN LESION
     Dosage: 2 OTHER
     Route: 061
     Dates: start: 20161019

REACTIONS (1)
  - Proteinuria [Recovered/Resolved]

NARRATIVE: CASE EVENT DATE: 20190528
